FAERS Safety Report 8193986-3 (Version None)
Quarter: 2012Q1

REPORT INFORMATION
  Report Type: 
  Country: None (occurrence: None)
  Receive Date: 20120308
  Receipt Date: 20120302
  Transmission Date: 20120608
  Serious: Yes (Other)
  Sender: FDA-Public Use
  Company Number: US-BAYER-2012-021562

PATIENT
  Age: 74 Year
  Sex: Male

DRUGS (1)
  1. GADAVIST [Suspect]
     Indication: ANGIOGRAM
     Dosage: UNK
     Dates: start: 20120211, end: 20120211

REACTIONS (1)
  - RASH [None]
